FAERS Safety Report 23386227 (Version 1)
Quarter: 2024Q1

REPORT INFORMATION
  Report Type: Spontaneous
  Country: US (occurrence: US)
  Receive Date: 20240110
  Receipt Date: 20240110
  Transmission Date: 20240410
  Serious: No
  Sender: FDA-Public Use
  Company Number: US-CADILA HEALTHCARE LIMITED-US-ZYDUS-095228

PATIENT

DRUGS (2)
  1. OMEPRAZOLE [Suspect]
     Active Substance: OMEPRAZOLE
     Indication: Gastrooesophageal reflux disease
     Dosage: , UNK
     Route: 048
     Dates: start: 20230409, end: 202304
  2. OMEPRAZOLE [Suspect]
     Active Substance: OMEPRAZOLE
     Dosage: , UNK
     Route: 048
     Dates: start: 202304, end: 202304

REACTIONS (1)
  - Hyperaesthesia teeth [Recovering/Resolving]

NARRATIVE: CASE EVENT DATE: 20230401
